FAERS Safety Report 21531384 (Version 1)
Quarter: 2022Q4

REPORT INFORMATION
  Report Type: Spontaneous
  Country: US (occurrence: None)
  Receive Date: 20221028
  Receipt Date: 20221028
  Transmission Date: 20230113
  Serious: Yes (Hospitalization)
  Sender: FDA-Public Use
  Company Number: None

PATIENT
  Age: 73 Year
  Sex: Male
  Weight: 151.50 kg

DRUGS (2)
  1. LIDOCAINE [Suspect]
     Active Substance: LIDOCAINE
     Indication: Cardiac operation
     Dosage: APPLY TO AFFECTED AREA UNITS ONCE TOP?
     Route: 061
     Dates: start: 20220117, end: 20220117
  2. LIDOCAINE [Suspect]
     Active Substance: LIDOCAINE
     Indication: Product used for unknown indication

REACTIONS (5)
  - Seizure [None]
  - Tachycardia [None]
  - Pulseless electrical activity [None]
  - Cardio-respiratory arrest [None]
  - Syncope [None]

NARRATIVE: CASE EVENT DATE: 20220117
